FAERS Safety Report 7481560-3 (Version None)
Quarter: 2011Q2

REPORT INFORMATION
  Report Type: 
  Country: None (occurrence: None)
  Receive Date: 20110516
  Receipt Date: 20101214
  Transmission Date: 20111010
  Serious: Yes (Other)
  Sender: FDA-Public Use
  Company Number: US-ROCHE-603716

PATIENT
  Age: 72 Year
  Sex: Female

DRUGS (6)
  1. DIOVAN [Concomitant]
  2. BYSTOLIC [Concomitant]
     Dates: start: 20081101
  3. VITAMIN TAB [Concomitant]
  4. FISH OIL [Concomitant]
  5. HYDROCHLOROTHIAZIDE [Concomitant]
  6. IBANDRONATE SODIUM [Suspect]
     Indication: OSTEOPENIA
     Route: 065
     Dates: end: 20080601

REACTIONS (7)
  - PAIN IN JAW [None]
  - THYROID CYST [None]
  - ARTHRITIS [None]
  - BACK PAIN [None]
  - PHARYNGEAL DISORDER [None]
  - THYROID NEOPLASM [None]
  - DYSPHAGIA [None]
